FAERS Safety Report 4571118-8 (Version None)
Quarter: 2005Q1

REPORT INFORMATION
  Report Type: 
  Country: None (occurrence: None)
  Receive Date: 20050202
  Receipt Date: 20041129
  Transmission Date: 20050727
  Serious: Yes (Other)
  Sender: FDA-Public Use
  Company Number: 2004103190

PATIENT
  Age: 40 Year
  Sex: Male

DRUGS (1)
  1. VIAGRA [Suspect]
     Indication: ILL-DEFINED DISORDER
     Dosage: 100 MG (1 IN 1 D), ORAL
     Route: 048
     Dates: start: 20020425

REACTIONS (2)
  - DRUG DEPENDENCE [None]
  - TREATMENT NONCOMPLIANCE [None]
